FAERS Safety Report 4316616-7 (Version None)
Quarter: 2004Q1

REPORT INFORMATION
  Report Type: 
  Country: None (occurrence: None)
  Receive Date: 20040311
  Receipt Date: 20040301
  Transmission Date: 20041129
  Serious: Yes (Hospitalization)
  Sender: FDA-Public Use
  Company Number: 2004200390DE

PATIENT
  Age: 53 Year
  Sex: Male
  Weight: 64 kg

DRUGS (12)
  1. ZYVOX [Suspect]
     Indication: BACTERAEMIA
     Dosage: 1200 MG, DAILY, IV
     Route: 042
     Dates: start: 20040107, end: 20040211
  2. ZYVOX [Suspect]
     Indication: BACTERAEMIA
     Dosage: 1200 MG, DAILY, ORAL
     Route: 048
     Dates: start: 20040214, end: 20040217
  3. PANTOZOL (PANTOPRAZOLE SODIUM) [Concomitant]
  4. NORVASC [Concomitant]
  5. IDEOS [Concomitant]
  6. URBASON [Concomitant]
  7. COTRIM [Concomitant]
  8. KALINOR RETARD [Concomitant]
  9. AMPHO-MORONAL [Concomitant]
  10. VFEND [Concomitant]
  11. TAZOBAC (TAZOBACTAM SODIUM) [Concomitant]
  12. AUGMENTAN ORAL [Concomitant]

REACTIONS (8)
  - CONFUSIONAL STATE [None]
  - DISEASE RECURRENCE [None]
  - FUNGAL INFECTION [None]
  - GRAND MAL CONVULSION [None]
  - LYMPHOMA [None]
  - OESOPHAGITIS [None]
  - TREMOR [None]
  - UPPER GASTROINTESTINAL HAEMORRHAGE [None]
